FAERS Safety Report 19096643 (Version 1)
Quarter: 2021Q2

REPORT INFORMATION
  Report Type: Report from Study
  Country: US (occurrence: US)
  Receive Date: 20210406
  Receipt Date: 20210406
  Transmission Date: 20210717
  Serious: Yes (Other)
  Sender: FDA-Public Use
  Company Number: US-MYLANLABS-2021M1019604

PATIENT
  Sex: Female
  Weight: 68 kg

DRUGS (1)
  1. GLATIRAMER ACETATE INJECTION [Suspect]
     Active Substance: GLATIRAMER ACETATE
     Indication: RELAPSING-REMITTING MULTIPLE SCLEROSIS
     Dosage: 40 MILLIGRAM, 3XW
     Route: 058

REACTIONS (10)
  - Injection site urticaria [Unknown]
  - Chills [Unknown]
  - Pain [Unknown]
  - Immobile [Unknown]
  - Musculoskeletal discomfort [Unknown]
  - Headache [Unknown]
  - Pyrexia [Unknown]
  - Feeling abnormal [Unknown]
  - Injection site swelling [Unknown]
  - Tremor [Unknown]
